FAERS Safety Report 5830302-3 (Version None)
Quarter: 2008Q3

REPORT INFORMATION
  Report Type: 
  Country: None (occurrence: None)
  Receive Date: 20080801
  Receipt Date: 20080721
  Transmission Date: 20090109
  Serious: Yes (Death, Other)
  Sender: FDA-Public Use
  Company Number: US-JNJFOC-20080301659

PATIENT
  Sex: Male
  Weight: 90.27 kg

DRUGS (4)
  1. DURAGESIC-100 [Suspect]
     Indication: CANCER PAIN
     Route: 062
  2. VECTIBIX [Concomitant]
     Indication: COLORECTAL CANCER
     Route: 065
  3. DILANTIN [Concomitant]
     Indication: CONVULSION
  4. VICODIN [Concomitant]
     Indication: PAIN
     Route: 048

REACTIONS (9)
  - ASTHENIA [None]
  - COLORECTAL CANCER METASTATIC [None]
  - DISORIENTATION [None]
  - DYSPNOEA [None]
  - FEELING HOT [None]
  - INSOMNIA [None]
  - PARANOIA [None]
  - SINUS CONGESTION [None]
  - WRONG TECHNIQUE IN DRUG USAGE PROCESS [None]
